FAERS Safety Report 11137509 (Version 1)
Quarter: 2015Q2

REPORT INFORMATION
  Report Type: Spontaneous
  Country: FR (occurrence: FR)
  Receive Date: 20150526
  Receipt Date: 20150526
  Transmission Date: 20150821
  Serious: Yes (Hospitalization)
  Sender: FDA-Public Use
  Company Number: FR-AUROBINDO-AUR-APL-2015-04495

PATIENT
  Age: 82 Year
  Sex: Female

DRUGS (8)
  1. ATARAX [Concomitant]
     Active Substance: HYDROXYZINE\HYDROXYZINE HYDROCHLORIDE
     Indication: PRODUCT USED FOR UNKNOWN INDICATION
     Dosage: 50 MG, ONCE A DAY
     Route: 065
     Dates: start: 20150210
  2. PAROXETINE ARROW [Suspect]
     Active Substance: PAROXETINE\PAROXETINE HYDROCHLORIDE
     Indication: GENERALISED ANXIETY DISORDER
     Dosage: 10 MG, ONCE A DAY
     Route: 065
     Dates: start: 20150206, end: 20150210
  3. XANAX [Concomitant]
     Active Substance: ALPRAZOLAM
     Indication: ANXIETY
     Dosage: 1.5 MG, ONCE A DAY
     Route: 065
     Dates: start: 20150131
  4. PAROXETINE ARROW [Suspect]
     Active Substance: PAROXETINE\PAROXETINE HYDROCHLORIDE
     Indication: AFFECTIVE DISORDER
     Dosage: 10 MG, TWO TIMES A DAY
     Route: 065
     Dates: start: 20150210, end: 20150219
  5. IMOVANE [Concomitant]
     Active Substance: ZOPICLONE
     Indication: PRODUCT USED FOR UNKNOWN INDICATION
     Dosage: 7.5 MG, ONCE A DAY
     Route: 065
     Dates: start: 20150206
  6. XANAX [Concomitant]
     Active Substance: ALPRAZOLAM
     Dosage: 1 MG, ONCE A DAY
     Route: 065
     Dates: start: 20150216
  7. XANAX [Concomitant]
     Active Substance: ALPRAZOLAM
     Dosage: 1.5 MG, ONCE A DAY
     Route: 065
     Dates: start: 20150210
  8. XANAX [Concomitant]
     Active Substance: ALPRAZOLAM
     Dosage: 0.7 MG, ONCE A DAY
     Route: 065
     Dates: start: 20150223

REACTIONS (1)
  - Skin exfoliation [Recovered/Resolved]

NARRATIVE: CASE EVENT DATE: 20150216
